FAERS Safety Report 10195867 (Version 1)
Quarter: 2014Q2

REPORT INFORMATION
  Report Type: Spontaneous
  Country: FR (occurrence: FR)
  Receive Date: 20140527
  Receipt Date: 20140527
  Transmission Date: 20141212
  Serious: Yes (Hospitalization)
  Sender: FDA-Public Use
  Company Number: FR-ASTRAZENECA-2014SE34477

PATIENT
  Age: 20615 Day
  Sex: Male

DRUGS (4)
  1. ENTOCORT [Suspect]
     Indication: CROHN^S DISEASE
     Route: 048
     Dates: start: 201311, end: 20131216
  2. ENTOCORT [Suspect]
     Indication: CROHN^S DISEASE
     Route: 048
  3. IMUREL [Suspect]
     Indication: CROHN^S DISEASE
     Route: 048
     Dates: start: 201311, end: 20131216
  4. AMOXICILLINE/ACIDE CLAVULANIQUE MYLAN [Suspect]
     Route: 048
     Dates: start: 20131214, end: 20131217

REACTIONS (4)
  - Pancreatitis acute [Recovered/Resolved]
  - Cough [None]
  - Headache [None]
  - Chills [None]
